FAERS Safety Report 5232879-8 (Version None)
Quarter: 2007Q1

REPORT INFORMATION
  Report Type: 
  Country: None (occurrence: None)
  Receive Date: 20061204
  Receipt Date: 20060926
  Transmission Date: 20070707
  Serious: No
  Sender: FDA-Public Use
  Company Number: 2006-BP-10161BP

PATIENT
  Age: 79 Year
  Sex: Female
  Weight: 52.16 kg

DRUGS (8)
  1. SPIRIVA [Suspect]
     Dosage: (18 MCG)
     Dates: start: 20060101
  2. QVAR (BECLOMETASONE DIPROPIONATE) [Concomitant]
  3. SEREVENT [Concomitant]
  4. SEGRILINE (ALL OTHER THERAPEUTIC PRODUCTS) [Concomitant]
  5. XANAX [Concomitant]
  6. DARVOCET [Concomitant]
  7. LISINOPRIL [Concomitant]
  8. LEVOTHYROXINE SODIUM [Concomitant]

REACTIONS (1)
  - CONDITION AGGRAVATED [None]
